FAERS Safety Report 21808216 (Version 1)
Quarter: 2023Q1

REPORT INFORMATION
  Report Type: Report from Study
  Country: None (occurrence: GB)
  Receive Date: 20230103
  Receipt Date: 20230103
  Transmission Date: 20230418
  Serious: Yes (Other)
  Sender: FDA-Public Use
  Company Number: GB-Therakind Limited-2136352

PATIENT
  Sex: Female

DRUGS (2)
  1. METHOTREXATE [Suspect]
     Active Substance: METHOTREXATE
     Indication: Product used for unknown indication
  2. COSENTYX [Suspect]
     Active Substance: SECUKINUMAB
     Route: 058

REACTIONS (2)
  - Liver injury [Unknown]
  - Varices oesophageal [Unknown]
